FAERS Safety Report 6389691-6 (Version None)
Quarter: 2009Q4

REPORT INFORMATION
  Report Type: 
  Country: None (occurrence: None)
  Receive Date: 20091002
  Receipt Date: 20091002
  Transmission Date: 20100525
  Serious: No
  Sender: FDA-Public Use
  Company Number: None

PATIENT
  Sex: Female
  Weight: 68.0396 kg

DRUGS (1)
  1. TRI LO SPRINTEC [Suspect]
     Indication: CONTRACEPTION
     Dates: start: 20090809, end: 20090909

REACTIONS (2)
  - DEEP VEIN THROMBOSIS [None]
  - PRODUCT SUBSTITUTION ISSUE [None]
